FAERS Safety Report 11608020 (Version 1)
Quarter: 2015Q4

REPORT INFORMATION
  Report Type: Spontaneous
  Country: US (occurrence: US)
  Receive Date: 20151007
  Receipt Date: 20151007
  Transmission Date: 20160304
  Serious: Yes (Other)
  Sender: FDA-Public Use
  Company Number: US-TEVA-598283USA

PATIENT
  Sex: Female
  Weight: 56.3 kg

DRUGS (2)
  1. CEFALEXIN [Suspect]
     Active Substance: CEPHALEXIN
     Indication: SKIN INFECTION
     Route: 065
  2. CEFALEXIN [Suspect]
     Active Substance: CEPHALEXIN

REACTIONS (3)
  - Oropharyngeal neoplasm [Unknown]
  - Dyspnoea [Unknown]
  - Drug intolerance [Unknown]
